FAERS Safety Report 4548269-7 (Version None)
Quarter: 2005Q1

REPORT INFORMATION
  Report Type: 
  Country: None (occurrence: None)
  Receive Date: 20050106
  Receipt Date: 20050106
  Transmission Date: 20050727
  Serious: Yes (Death)
  Sender: FDA-Public Use
  Company Number: None

PATIENT
  Age: 32 Year
  Sex: Female
  Weight: 86.637 kg

DRUGS (1)
  1. DEPO-PROVERA [Suspect]

REACTIONS (3)
  - EPILEPSY [None]
  - LOSS OF CONSCIOUSNESS [None]
  - MOOD SWINGS [None]
